FAERS Safety Report 8798975 (Version 1)
Quarter: 2012Q4

REPORT INFORMATION
  Report Type: Spontaneous
  Country: US (occurrence: None)
  Receive Date: 20120918
  Receipt Date: 20120918
  Transmission Date: 20130627
  Serious: No
  Sender: FDA-Public Use
  Company Number: None

PATIENT
  Age: 38 Year
  Sex: Female
  Weight: 65.77 kg

DRUGS (2)
  1. FLUOXETINE [Suspect]
  2. FLUOXETINE [Suspect]

REACTIONS (4)
  - Product quality issue [None]
  - Drug ineffective [None]
  - Product substitution issue [None]
  - Economic problem [None]
